FAERS Safety Report 4291047-7 (Version None)
Quarter: 2004Q1

REPORT INFORMATION
  Report Type: 
  Country: None (occurrence: None)
  Receive Date: 20040211
  Receipt Date: 20031103
  Transmission Date: 20041129
  Serious: No
  Sender: FDA-Public Use
  Company Number: US-GLAXOSMITHKLINE-A0432576A

PATIENT
  Sex: Female

DRUGS (2)
  1. PAXIL [Suspect]
     Indication: DEPRESSION
     Route: 048
     Dates: start: 20031013, end: 20031001
  2. PAXIL CR [Suspect]
     Indication: DEPRESSION
     Route: 048

REACTIONS (2)
  - ASTHENIA [None]
  - FATIGUE [None]
